FAERS Safety Report 7247521-4 (Version None)
Quarter: 2011Q1

REPORT INFORMATION
  Report Type: 
  Country: None (occurrence: None)
  Receive Date: 20110127
  Receipt Date: 20110120
  Transmission Date: 20110831
  Serious: Yes (Death, Hospitalization)
  Sender: FDA-Public Use
  Company Number: FR-ROCHE-755189

PATIENT
  Sex: Male

DRUGS (4)
  1. AVASTIN [Suspect]
     Dosage: STRENGTH : 25 MG/ML. INJECTABLE SOLUTION. DOSE : 5 MG/KG.  FREQUENCY : PER CYCLE.
     Route: 042
     Dates: start: 20100924, end: 20101115
  2. CORTANCYL [Concomitant]
  3. VECTIBIX [Suspect]
     Dosage: STRENGTH : 20 MG/ML. INJECTABLE SOLUTION. DOSE : 3 TO 6 MG/KG. FREQUENCY : PER CYCLE.
     Route: 042
     Dates: start: 20091105, end: 20091115
  4. CELLCEPT [Concomitant]

REACTIONS (2)
  - NEPHROTIC SYNDROME [None]
  - NEPHROGENIC ANAEMIA [None]
